FAERS Safety Report 11229369 (Version 1)
Quarter: 2015Q2

REPORT INFORMATION
  Report Type: Report from Study
  Country: MX (occurrence: MX)
  Receive Date: 20150630
  Receipt Date: 20150630
  Transmission Date: 20150821
  Serious: Yes (Death, Other)
  Sender: FDA-Public Use
  Company Number: PHHY2015MX077076

PATIENT
  Age: 95 Year
  Sex: Female
  Weight: 50 kg

DRUGS (3)
  1. AKINETON//BIPERIDEN LACTATE [Concomitant]
     Indication: DEMENTIA ALZHEIMER^S TYPE
     Dosage: 0.25 DF, QD ? (2 MG)
     Route: 048
  2. DIOVAN [Suspect]
     Active Substance: VALSARTAN
     Indication: HYPERTENSION
     Dosage: 80 MG, UNK
     Route: 048
  3. AKATINOL [Concomitant]
     Indication: PARKINSON^S DISEASE
     Dosage: 1 DF, QD
     Route: 065

REACTIONS (2)
  - Cerebrovascular accident [Fatal]
  - Infarction [Unknown]

NARRATIVE: CASE EVENT DATE: 20150617
